FAERS Safety Report 12213273 (Version 1)
Quarter: 2016Q1

REPORT INFORMATION
  Report Type: Spontaneous
  Country: US (occurrence: US)
  Receive Date: 20160328
  Receipt Date: 20160328
  Transmission Date: 20160526
  Serious: Yes (Death, Hospitalization)
  Sender: FDA-Public Use
  Company Number: US-STRIDES ARCOLAB LIMITED-2016SP001942

PATIENT

DRUGS (5)
  1. PREDNISOLONE. [Suspect]
     Active Substance: PREDNISOLONE
     Indication: IMMUNOSUPPRESSION
     Dosage: UNK
  2. SULFADIAZINE. [Concomitant]
     Active Substance: SULFADIAZINE
     Indication: TOXOPLASMOSIS
     Dosage: UNK
  3. PYRIMETHAMINE [Concomitant]
     Active Substance: PYRIMETHAMINE
     Indication: TOXOPLASMOSIS
     Dosage: UNK
  4. MYCOPHENOLATE MOFETIL. [Suspect]
     Active Substance: MYCOPHENOLATE MOFETIL
     Indication: IMMUNOSUPPRESSION
     Dosage: UNK
  5. CICLOSPORIN [Suspect]
     Active Substance: CYCLOSPORINE
     Indication: IMMUNOSUPPRESSION
     Dosage: UNK

REACTIONS (10)
  - Post transplant lymphoproliferative disorder [Unknown]
  - Headache [Recovered/Resolved]
  - Vomiting [Unknown]
  - Confusional state [Recovered/Resolved]
  - Epstein-Barr virus infection [Unknown]
  - Infection [Fatal]
  - Lethargy [Unknown]
  - Nausea [Recovered/Resolved]
  - Peritumoural oedema [Unknown]
  - Cardiovascular disorder [Fatal]
